FAERS Safety Report 19168234 (Version 1)
Quarter: 2021Q2

REPORT INFORMATION
  Report Type: Spontaneous
  Country: GB (occurrence: GB)
  Receive Date: 20210422
  Receipt Date: 20210422
  Transmission Date: 20210717
  Serious: Yes (Other)
  Sender: FDA-Public Use
  Company Number: GB-ACCORD-223209

PATIENT
  Age: 56 Year
  Sex: Male
  Weight: 86 kg

DRUGS (13)
  1. ASPIRIN. [Concomitant]
     Active Substance: ASPIRIN
     Dates: start: 20210102, end: 20210315
  2. OLMESARTAN [Concomitant]
     Active Substance: OLMESARTAN
     Dates: start: 20210216, end: 20210310
  3. HYLO?TEAR [Concomitant]
     Dosage: USE 4?5 TIMES DAILY, AS NECESSARY
     Dates: start: 20210315
  4. VISCOTEARS [Concomitant]
     Active Substance: CARBOMER
     Dosage: ONE DROP 3?4 TIMES DAILY
     Dates: start: 20210315
  5. GLYCERYL TRINITRATE [Concomitant]
     Active Substance: NITROGLYCERIN
     Dosage: 1 ?2 S/L, AS NECESSARY
     Dates: start: 20210102, end: 20210315
  6. AMLODIPINE [Concomitant]
     Active Substance: AMLODIPINE BESYLATE
     Dates: start: 20210102
  7. PROPRANOLOL [Concomitant]
     Active Substance: PROPRANOLOL HYDROCHLORIDE
     Dosage: 1?2 TO BE TAKEN THREE TIMES DAILY, AS NECESSARY
     Dates: start: 20210102
  8. OLMESARTAN [Suspect]
     Active Substance: OLMESARTAN
     Indication: PRODUCT USED FOR UNKNOWN INDICATION
     Dates: start: 20210216
  9. CARBIMAZOLE [Concomitant]
     Active Substance: CARBIMAZOLE
     Dosage: THREE DAYS A WEEK I.E. MONDAYS,...
     Dates: start: 20210102
  10. CITALOPRAM [Concomitant]
     Active Substance: CITALOPRAM HYDROBROMIDE
     Dates: start: 20210102
  11. LANSOPRAZOLE. [Concomitant]
     Active Substance: LANSOPRAZOLE
     Dosage: TAKE ALONGSIDE ANTI?INFLAMMATOR...
     Dates: start: 20210102
  12. PERINDOPRIL [Concomitant]
     Active Substance: PERINDOPRIL
     Dosage: MORNING
     Dates: start: 20210125, end: 20210216
  13. LOSARTAN. [Concomitant]
     Active Substance: LOSARTAN
     Indication: HYPERTENSION
     Dosage: MORNING
     Dates: start: 20210310

REACTIONS (1)
  - Muscular weakness [Recovering/Resolving]

NARRATIVE: CASE EVENT DATE: 20210317
